FAERS Safety Report 4626097-1 (Version None)
Quarter: 2005Q2

REPORT INFORMATION
  Report Type: 
  Country: None (occurrence: None)
  Receive Date: 20050404
  Receipt Date: 20050324
  Transmission Date: 20051028
  Serious: Yes (Hospitalization)
  Sender: FDA-Public Use
  Company Number: FR-BRISTOL-MYERS SQUIBB COMPANY-12910733

PATIENT
  Age: 49 Year
  Sex: Female

DRUGS (6)
  1. PARAPLATIN [Suspect]
     Indication: OVARIAN CANCER
     Route: 042
     Dates: start: 20041102, end: 20041102
  2. POLARAMINE [Suspect]
     Route: 042
     Dates: start: 20041102, end: 20041102
  3. TAXOL [Concomitant]
     Indication: OVARIAN CANCER
     Route: 042
     Dates: start: 20041102, end: 20041102
  4. SOLU-MEDROL [Concomitant]
     Dosage: WAS ALSO ON 40 MG INTRAVENOUSLY FOR UNKNOWN DURATION FOR UNKNOWN INDICATION
     Route: 042
     Dates: start: 20041102, end: 20041102
  5. ZANTAC [Concomitant]
     Route: 042
     Dates: start: 20041102, end: 20041102
  6. KYTRIL [Concomitant]
     Route: 042
     Dates: start: 20041102, end: 20041102

REACTIONS (4)
  - ABDOMINAL PAIN [None]
  - DYSPEPSIA [None]
  - GLOSSODYNIA [None]
  - TACHYCARDIA [None]
